FAERS Safety Report 6638393-7 (Version None)
Quarter: 2010Q1

REPORT INFORMATION
  Report Type: 
  Country: None (occurrence: None)
  Receive Date: 20100317
  Receipt Date: 20100308
  Transmission Date: 20100710
  Serious: Yes (Life-Threatening)
  Sender: FDA-Public Use
  Company Number: B0638215A

PATIENT
  Age: 35 Year
  Sex: Female
  Weight: 65 kg

DRUGS (1)
  1. AUGMENTIN [Suspect]
     Route: 040
     Dates: start: 20090829, end: 20090829

REACTIONS (2)
  - CARDIAC ARREST [None]
  - DRUG HYPERSENSITIVITY [None]
